FAERS Safety Report 10332808 (Version 2)
Quarter: 2014Q1

REPORT INFORMATION
  Report Type: Spontaneous
  Country: US (occurrence: None)
  Receive Date: 20120817
  Receipt Date: 20130815
  Transmission Date: 20141002
  Serious: Yes (Other)
  Sender: FDA-Public Use
  Company Number: ADR-2012-00681

PATIENT
  Age: 49 Year
  Sex: Female

DRUGS (5)
  1. BACLOFEN INTRATHECAL (BACLOFEN INJECTION) 600 MCG/ML [Suspect]
     Indication: PAIN
     Dosage: 378.20 MCG/DAY
  2. BACLOFEN INTRATHECAL (BACLOFEN INJECTION) 600 MCG/ML [Suspect]
     Indication: POST LAMINECTOMY SYNDROME
     Dosage: 378.20 MCG/DAY
  3. DILAUDID [Concomitant]
  4. BUPIVACAINE [Concomitant]
  5. CLONIDINE [Concomitant]

REACTIONS (1)
  - Pain [None]
